FAERS Safety Report 8818532 (Version 1)
Quarter: 2012Q4

REPORT INFORMATION
  Report Type: Spontaneous
  Country: US (occurrence: None)
  Receive Date: 20121003
  Receipt Date: 20121003
  Transmission Date: 20130627
  Serious: Yes (Other)
  Sender: FDA-Public Use
  Company Number: ADR-2012-01801

PATIENT
  Sex: Male

DRUGS (1)
  1. BACLOFEN INTRATHECAL (BACLOFEN INJECTION) [Suspect]
     Indication: SPASTICITY

REACTIONS (3)
  - Implant site infection [None]
  - Pyrexia [None]
  - Implant site erythema [None]
